FAERS Safety Report 5017805-9 (Version None)
Quarter: 2006Q2

REPORT INFORMATION
  Report Type: 
  Country: None (occurrence: None)
  Receive Date: 20060530
  Receipt Date: 20050405
  Transmission Date: 20061013
  Serious: Yes (Hospitalization)
  Sender: FDA-Public Use
  Company Number: 2005054418

PATIENT
  Age: 68 Year
  Sex: Female
  Weight: 66 kg

DRUGS (3)
  1. PREGABALIN [Suspect]
     Indication: DIABETIC NEUROPATHY
     Dosage: 300 MG, ORAL
     Route: 048
     Dates: start: 20050301, end: 20050405
  2. INSULIN [Concomitant]
  3. ANTIHYPERTENSIVES [Concomitant]

REACTIONS (5)
  - BLOOD PRESSURE INCREASED [None]
  - DIFFICULTY IN WALKING [None]
  - DIPLOPIA [None]
  - HEADACHE [None]
  - VISION BLURRED [None]
